FAERS Safety Report 4765450-2 (Version None)
Quarter: 2005Q3

REPORT INFORMATION
  Report Type: 
  Country: None (occurrence: None)
  Receive Date: 20050906
  Receipt Date: 20050824
  Transmission Date: 20060218
  Serious: Yes (Hospitalization, Other)
  Sender: FDA-Public Use
  Company Number: 2005114834

PATIENT
  Age: 52 Year
  Sex: Male
  Weight: 72 kg

DRUGS (16)
  1. DOXAZOSIN MESYLATE [Suspect]
     Indication: HYPERTENSION
     Dosage: 4 MG (2 MG, BID), ORAL
     Route: 048
     Dates: start: 20040401, end: 20050803
  2. EPOGEN [Suspect]
     Indication: NEPHROGENIC ANAEMIA
     Dosage: SEE IMAGE
     Route: 058
     Dates: start: 20040801, end: 20050808
  3. EPOGEN [Suspect]
     Indication: NEPHROGENIC ANAEMIA
     Dosage: SEE IMAGE
     Route: 058
     Dates: start: 20041201, end: 20050808
  4. FUTHAN (NAFAMOSTAT MESILATE) [Suspect]
     Indication: ANTICOAGULANT THERAPY
     Dosage: 150 MG, INTRAVENOUS
     Route: 042
     Dates: start: 20041201, end: 20050808
  5. DIANEAL [Suspect]
     Indication: RENAL FAILURE CHRONIC
     Dates: start: 20050720
  6. EXTRANEAL (CALCIUM CHLORIDE DIHYDRATE, DEXTRIN, MAGNESIUM CHLORIDE ANH [Concomitant]
  7. DIOVAN    CIBA-GEIGY     (VALSARTAN) [Concomitant]
  8. CALBLOCK (AZELNIDIPINE) [Concomitant]
  9. ACECOL (TEMOCAPRIL HYDROCHLORIDE) [Concomitant]
  10. ALDOMET [Concomitant]
  11. LANDEL (EFONIDIPINE HYDROCHLORIDE) [Concomitant]
  12. RENAGEL [Concomitant]
  13. GLUCOBAY [Concomitant]
  14. ALFAROL (ALFACALCIDOL) [Concomitant]
  15. PERSANTIN [Concomitant]
  16. LASIX [Concomitant]

REACTIONS (9)
  - EOSINOPHIL COUNT INCREASED [None]
  - HAEMODIALYSIS [None]
  - NEPHROGENIC ANAEMIA [None]
  - PERITONEAL DIALYSIS [None]
  - PERITONITIS [None]
  - PERITONITIS BACTERIAL [None]
  - PYREXIA [None]
  - SHOCK [None]
  - WHITE BLOOD CELL COUNT INCREASED [None]
